FAERS Safety Report 8500098 (Version 5)
Quarter: 2013Q1

REPORT INFORMATION
  Report Type: Spontaneous
  Country: US (occurrence: US)
  Receive Date: 20120409
  Receipt Date: 20130122
  Transmission Date: 20140127
  Serious: Yes (Hospitalization, Other)
  Sender: FDA-Public Use
  Company Number: US-009507513-1204USA00886

PATIENT
  Sex: 0

DRUGS (5)
  1. FOSAMAX [Suspect]
     Indication: OSTEOPOROSIS
     Dosage: 10 MG, QD
     Route: 048
     Dates: start: 20000428, end: 20031007
  2. FOSAMAX [Suspect]
     Dosage: 70 MG, QW
     Route: 048
     Dates: start: 20031007, end: 20050625
  3. FOSAMAX PLUS D [Suspect]
     Indication: OSTEOPOROSIS
     Dosage: 70/2800 QW
     Route: 048
     Dates: start: 20050625, end: 20110319
  4. CALCIUM (UNSPECIFIED) [Concomitant]
     Indication: OSTEOPOROSIS
     Dosage: 1500 MG, QD
  5. BELLERGAL-S TABLETS [Concomitant]
     Indication: MENOPAUSAL SYMPTOMS

REACTIONS (34)
  - Femur fracture [Unknown]
  - Femur fracture [Unknown]
  - Low turnover osteopathy [Unknown]
  - Tooth disorder [Unknown]
  - Vitamin D deficiency [Not Recovered/Not Resolved]
  - Hyperlipidaemia [Not Recovered/Not Resolved]
  - Hypertension [Unknown]
  - Melanocytic naevus [Unknown]
  - Anaemia [Recovered/Resolved]
  - Sinusitis [Unknown]
  - Labyrinthitis [Unknown]
  - Haematuria [Unknown]
  - Acute stress disorder [Recovered/Resolved]
  - Cardiomegaly [Unknown]
  - Pulmonary hypertension [Unknown]
  - Anaemia postoperative [Unknown]
  - Osteoarthritis [Unknown]
  - Feeling abnormal [Unknown]
  - Anxiety [Not Recovered/Not Resolved]
  - Depression [Unknown]
  - Palpitations [Unknown]
  - Muscle strain [Unknown]
  - Breast pain [Unknown]
  - Ligament sprain [Unknown]
  - Wheezing [Unknown]
  - Repetitive strain injury [Unknown]
  - Spinal pain [Unknown]
  - Family stress [Unknown]
  - Drug ineffective [Unknown]
  - Musculoskeletal chest pain [Unknown]
  - Rash [Unknown]
  - Gastrooesophageal reflux disease [Not Recovered/Not Resolved]
  - Gastritis [Recovered/Resolved]
  - Back pain [Unknown]
